FAERS Safety Report 8016924-2 (Version None)
Quarter: 2012Q1

REPORT INFORMATION
  Report Type: 
  Country: None (occurrence: None)
  Receive Date: 20120102
  Receipt Date: 20111222
  Transmission Date: 20120608
  Serious: Yes (Other)
  Sender: FDA-Public Use
  Company Number: PHEH2011US012387

PATIENT
  Sex: Female

DRUGS (3)
  1. METOPROLOL TARTRATE [Suspect]
     Dosage: UNK
  2. LOSARTAN POTASSIUM [Suspect]
  3. TEKTURNA [Suspect]
     Dosage: 1 DF (300/12.5MG) DAILY

REACTIONS (4)
  - HYPERHIDROSIS [None]
  - CARDIAC DISORDER [None]
  - ASTHENIA [None]
  - TREMOR [None]
